FAERS Safety Report 6491433-0 (Version None)
Quarter: 2009Q4

REPORT INFORMATION
  Report Type: 
  Country: None (occurrence: None)
  Receive Date: 20091123
  Receipt Date: 20090811
  Transmission Date: 20100525
  Serious: No
  Sender: FDA-Public Use
  Company Number: 8050644

PATIENT
  Age: 49 Year
  Sex: Female
  Weight: 54.4 kg

DRUGS (3)
  1. CIMZIA [Suspect]
     Indication: CROHN'S DISEASE
     Dosage: 400 MG SC
     Route: 058
     Dates: start: 20090614
  2. OXYCODONE [Concomitant]
  3. ATIVAN [Concomitant]

REACTIONS (3)
  - OEDEMA PERIPHERAL [None]
  - RASH ERYTHEMATOUS [None]
  - SWELLING FACE [None]
